FAERS Safety Report 5119501-6 (Version None)
Quarter: 2006Q3

REPORT INFORMATION
  Report Type: 
  Country: None (occurrence: None)
  Receive Date: 20060928
  Receipt Date: 20060918
  Transmission Date: 20061208
  Serious: Yes (Other)
  Sender: FDA-Public Use
  Company Number: 229099

PATIENT
  Age: 43 Year
  Sex: Female
  Weight: 64.4 kg

DRUGS (7)
  1. RITUXAN [Suspect]
     Indication: LYMPHOMA
     Dosage: 375 MG/M2, 1/WEEK, INTRAVENOUS
     Route: 042
     Dates: start: 20060106, end: 20060127
  2. RITUXAN [Suspect]
  3. RITUXAN [Suspect]
  4. RITUXAN [Suspect]
  5. EFFEXOR [Concomitant]
  6. XANAX [Concomitant]
  7. GABAPENTIN [Concomitant]

REACTIONS (3)
  - COMPLICATION OF PREGNANCY [None]
  - DRUG EXPOSURE DURING PREGNANCY [None]
  - PREGNANCY [None]
